FAERS Safety Report 5202421-6 (Version None)
Quarter: 2007Q1

REPORT INFORMATION
  Report Type: 
  Country: None (occurrence: None)
  Receive Date: 20070109
  Receipt Date: 20070108
  Transmission Date: 20070707
  Serious: Yes (Death, Life-Threatening)
  Sender: FDA-Public Use
  Company Number: 2006AP05683

PATIENT
  Age: 20614 Day
  Sex: Female

DRUGS (10)
  1. IRESSA [Suspect]
     Indication: NON-SMALL CELL LUNG CANCER
     Route: 048
     Dates: start: 20061109, end: 20061127
  2. IRESSA [Suspect]
     Indication: LUNG ADENOCARCINOMA STAGE IV
     Route: 048
     Dates: start: 20061109, end: 20061127
  3. CLARINASE [Concomitant]
     Indication: SINUSITIS
     Route: 048
     Dates: start: 20061031
  4. COUGH MIXTURE [Concomitant]
     Indication: COUGH
     Route: 048
     Dates: start: 20061031
  5. FLUDIAZEPAM [Concomitant]
     Indication: INSOMNIA
     Route: 048
     Dates: start: 20061103
  6. SULFISOMEZOLE OPH SOL [Concomitant]
     Indication: GLAUCOMA
     Dosage: 4%
     Route: 061
     Dates: start: 20061108
  7. BETAXOLOL HCL OPH SUSP [Concomitant]
     Indication: GLAUCOMA
     Dosage: 0.25%
     Route: 061
     Dates: start: 20061108
  8. ACETAMINOPHEN [Concomitant]
     Indication: ARTHRALGIA
     Route: 048
     Dates: start: 20061116
  9. BUDESONIDE NASAL AQUA [Concomitant]
     Indication: SINUSITIS
     Route: 045
     Dates: start: 20061123
  10. VISTARIL [Concomitant]
     Indication: SINUSITIS
     Route: 048
     Dates: start: 20061123

REACTIONS (6)
  - FIBROSIS [None]
  - HYPOKALAEMIA [None]
  - INTERSTITIAL LUNG DISEASE [None]
  - METASTASES TO LUNG [None]
  - SYSTEMIC INFLAMMATORY RESPONSE SYNDROME [None]
  - TACHYPNOEA [None]
